FAERS Safety Report 12994771 (Version 11)
Quarter: 2019Q2

REPORT INFORMATION
  Report Type: Report from Study
  Country: US (occurrence: US)
  Receive Date: 20161202
  Receipt Date: 20190524
  Transmission Date: 20190711
  Serious: Yes (Hospitalization, Other)
  Sender: FDA-Public Use
  Company Number: US-ACTELION-A-NJ2016-146292

PATIENT
  Age: 53 Year
  Sex: Female

DRUGS (24)
  1. ZOLOFT [Concomitant]
     Active Substance: SERTRALINE HYDROCHLORIDE
  2. LEVAQUIN [Concomitant]
     Active Substance: LEVOFLOXACIN
  3. LIPITOR [Concomitant]
     Active Substance: ATORVASTATIN CALCIUM
  4. AMLODIPINE [Concomitant]
     Active Substance: AMLODIPINE BESYLATE
  5. ACETAMINOPHEN AND CODEINE [Concomitant]
     Active Substance: ACETAMINOPHEN\CODEINE PHOSPHATE
  6. AMBIEN [Concomitant]
     Active Substance: ZOLPIDEM TARTRATE
  7. LYRICA [Concomitant]
     Active Substance: PREGABALIN
  8. RENVELA [Concomitant]
     Active Substance: SEVELAMER CARBONATE
  9. LINZESS [Concomitant]
     Active Substance: LINACLOTIDE
  10. CLINDAMYCIN. [Concomitant]
     Active Substance: CLINDAMYCIN
  11. AMITRIPTYLINE [Concomitant]
     Active Substance: AMITRIPTYLINE
  12. UPTRAVI [Suspect]
     Active Substance: SELEXIPAG
     Indication: PULMONARY ARTERIAL HYPERTENSION
     Dosage: 400 MCG, BID
     Route: 048
     Dates: start: 20160524
  13. OPSUMIT [Suspect]
     Active Substance: MACITENTAN
     Indication: PULMONARY ARTERIAL HYPERTENSION
     Dosage: 10 MG, QD
     Route: 048
     Dates: start: 20150414
  14. PROAIR HFA [Concomitant]
     Active Substance: ALBUTEROL SULFATE
  15. PROCHLORPERAZINE. [Concomitant]
     Active Substance: PROCHLORPERAZINE
  16. CYCLOBENZAPRINE. [Concomitant]
     Active Substance: CYCLOBENZAPRINE
  17. CARVEDILOL. [Concomitant]
     Active Substance: CARVEDILOL
  18. NEXIUM [Concomitant]
     Active Substance: ESOMEPRAZOLE MAGNESIUM
  19. PROMETHAZINE [Concomitant]
     Active Substance: PROMETHAZINE\PROMETHAZINE HYDROCHLORIDE
  20. OXYCODONE [Concomitant]
     Active Substance: OXYCODONE
  21. SENSIPAR [Concomitant]
     Active Substance: CINACALCET HYDROCHLORIDE
  22. BACTRIM [Concomitant]
     Active Substance: SULFAMETHOXAZOLE\TRIMETHOPRIM
  23. MIDODRINE [Concomitant]
     Active Substance: MIDODRINE
  24. XANAX [Concomitant]
     Active Substance: ALPRAZOLAM

REACTIONS (16)
  - Hypotension [Unknown]
  - Fatigue [Unknown]
  - Mental disorder [Unknown]
  - Anxiety [Unknown]
  - Intestinal obstruction [Unknown]
  - Dizziness [Unknown]
  - Dyspnoea [Unknown]
  - Fluid retention [Not Recovered/Not Resolved]
  - Ovarian cyst [Unknown]
  - Rash [Not Recovered/Not Resolved]
  - Dialysis [Unknown]
  - Pneumonia [Unknown]
  - Large intestine infection [Unknown]
  - Panic attack [Unknown]
  - Pulmonary arterial pressure increased [Recovered/Resolved]
  - Pruritus [Not Recovered/Not Resolved]

NARRATIVE: CASE EVENT DATE: 20161123
